FAERS Safety Report 12698386 (Version 1)
Quarter: 2016Q3

REPORT INFORMATION
  Report Type: Spontaneous
  Country: US (occurrence: US)
  Receive Date: 20160830
  Receipt Date: 20160830
  Transmission Date: 20161109
  Serious: No
  Sender: FDA-Public Use
  Company Number: US-JNJFOC-20160815102

PATIENT

DRUGS (1)
  1. RISPERDAL CONSTA [Suspect]
     Active Substance: RISPERIDONE
     Indication: PRODUCT USED FOR UNKNOWN INDICATION
     Dosage: DOSE: MIXED 75 MG AND 25 MG VIALS TOGETHER
     Route: 030

REACTIONS (3)
  - Product preparation error [Unknown]
  - Incorrect dose administered [Unknown]
  - Off label use [Unknown]
